FAERS Safety Report 19386210 (Version 1)
Quarter: 2021Q2

REPORT INFORMATION
  Report Type: Report from Study
  Country: KR (occurrence: KR)
  Receive Date: 20210608
  Receipt Date: 20210608
  Transmission Date: 20210717
  Serious: Yes (Other)
  Sender: FDA-Public Use
  Company Number: KR-AUROBINDO-AUR-APL-2019-059134

PATIENT
  Age: 67 Year
  Sex: Male

DRUGS (16)
  1. DOXORUBICIN [Concomitant]
     Active Substance: DOXORUBICIN
     Indication: PERIPHERAL T-CELL LYMPHOMA UNSPECIFIED STAGE III
     Dosage: UNK
     Route: 065
  2. FOLINIC ACID [Concomitant]
     Active Substance: LEUCOVORIN
     Indication: MUCOSAL INFLAMMATION
     Dosage: 45 MILLIGRAM
     Route: 065
  3. IFOSFAMIDE. [Concomitant]
     Active Substance: IFOSFAMIDE
     Indication: PERIPHERAL T-CELL LYMPHOMA UNSPECIFIED STAGE III
     Dosage: UNK
     Route: 065
  4. LEUCOVORIN. [Concomitant]
     Active Substance: LEUCOVORIN
     Dosage: 45 UNK
  5. CARBOPLATIN. [Concomitant]
     Active Substance: CARBOPLATIN
     Indication: PERIPHERAL T-CELL LYMPHOMA UNSPECIFIED STAGE III
     Dosage: UNK
     Route: 065
  6. VINCRISTINE [Concomitant]
     Active Substance: VINCRISTINE
     Indication: PERIPHERAL T-CELL LYMPHOMA UNSPECIFIED STAGE III
     Dosage: UNK
     Route: 065
  7. VITAMIN B12 [Concomitant]
     Active Substance: CYANOCOBALAMIN
     Indication: MUCOSAL INFLAMMATION
     Dosage: 1 MILLIGRAM
     Route: 030
  8. PRALATREXATE [Suspect]
     Active Substance: PRALATREXATE
     Indication: T-CELL LYMPHOMA REFRACTORY
     Dosage: 15 MILLIGRAM/SQ. METER
     Route: 042
  9. PRALATREXATE [Suspect]
     Active Substance: PRALATREXATE
     Indication: T-CELL LYMPHOMA RECURRENT
     Dosage: 15 MILLIGRAM, 1 WEEK, WEEKLY FOR 3 ?WEEK IN 28DAY CYCLE
     Route: 042
  10. PRALATREXATE [Suspect]
     Active Substance: PRALATREXATE
     Indication: PERIPHERAL T-CELL LYMPHOMA UNSPECIFIED STAGE III
  11. BORTEZOMIB. [Suspect]
     Active Substance: BORTEZOMIB
     Indication: T-CELL LYMPHOMA REFRACTORY
     Dosage: 1.3 MG/M2, 1 WEEK, WEEKLY FOR 3 ?WEEK IN 28DAY CYCLE
     Route: 042
  12. LEUCOVORIN. [Concomitant]
     Active Substance: LEUCOVORIN
     Indication: MUCOSAL INFLAMMATION
     Dosage: 45 MILLIGRAM, DAILY
     Route: 065
  13. BORTEZOMIB. [Suspect]
     Active Substance: BORTEZOMIB
     Indication: T-CELL LYMPHOMA RECURRENT
     Dosage: 1.3 MILLIGRAM/SQ. METER
     Route: 042
  14. BORTEZOMIB. [Suspect]
     Active Substance: BORTEZOMIB
     Indication: PERIPHERAL T-CELL LYMPHOMA UNSPECIFIED STAGE III
  15. CYCLOPHOSPHAMIDE. [Concomitant]
     Active Substance: CYCLOPHOSPHAMIDE
     Indication: PERIPHERAL T-CELL LYMPHOMA UNSPECIFIED STAGE III
     Dosage: UNK
     Route: 065
  16. ETOPOSIDE. [Concomitant]
     Active Substance: ETOPOSIDE
     Indication: PERIPHERAL T-CELL LYMPHOMA UNSPECIFIED STAGE III
     Dosage: UNK
     Route: 065

REACTIONS (9)
  - Thrombocytopenia [Unknown]
  - Disease progression [Unknown]
  - Therapeutic product effect incomplete [Unknown]
  - Herpes zoster [Unknown]
  - Neutropenia [Unknown]
  - Neuropathy peripheral [Unknown]
  - Decreased appetite [Unknown]
  - Mucosal inflammation [Unknown]
  - Off label use [Unknown]
